FAERS Safety Report 13550108 (Version 1)
Quarter: 2017Q2

REPORT INFORMATION
  Report Type: Spontaneous
  Country: DE (occurrence: DE)
  Receive Date: 20170516
  Receipt Date: 20170516
  Transmission Date: 20170830
  Serious: Yes (Other)
  Sender: FDA-Public Use
  Company Number: DE-DRREDDYS-GER/GER/17/0090601

PATIENT
  Age: 14 Year
  Sex: Male
  Weight: 53 kg

DRUGS (3)
  1. FLUOXETINE [Suspect]
     Active Substance: FLUOXETINE HYDROCHLORIDE
     Indication: ANTIDEPRESSANT THERAPY
     Dosage: 30-40MG
     Route: 065
  2. TRUXAL [Concomitant]
     Active Substance: CHLORPROTHIXENE
     Indication: TENSION
     Dosage: IN THE EVENING
  3. VIANI HUB [Concomitant]
     Indication: ASTHMA

REACTIONS (2)
  - Electrocardiogram QT prolonged [Recovered/Resolved]
  - Hypertension [Recovered/Resolved]
